FAERS Safety Report 12908917 (Version 1)
Quarter: 2016Q4

REPORT INFORMATION
  Report Type: Spontaneous
  Country: US (occurrence: US)
  Receive Date: 20161103
  Receipt Date: 20161103
  Transmission Date: 20170207
  Serious: No
  Sender: FDA-Public Use
  Company Number: US-JAZZ-2016-US-016569

PATIENT
  Sex: Male

DRUGS (12)
  1. CYCLOBENZAPRINE [Concomitant]
     Active Substance: CYCLOBENZAPRINE
  2. XYREM [Suspect]
     Active Substance: SODIUM OXYBATE
     Indication: NARCOLEPSY
     Dosage: 2.25 G, BID
     Route: 048
     Dates: start: 201608
  3. MODAFINIL. [Concomitant]
     Active Substance: MODAFINIL
  4. IBUPROFEN. [Concomitant]
     Active Substance: IBUPROFEN
  5. MECLIZINE HCL [Concomitant]
     Active Substance: MECLIZINE HYDROCHLORIDE
  6. VITAMIN C [Concomitant]
     Active Substance: ASCORBIC ACID
  7. VITAMIN D3 [Concomitant]
     Active Substance: CHOLECALCIFEROL
  8. XYREM [Suspect]
     Active Substance: SODIUM OXYBATE
     Indication: CATAPLEXY
  9. FIORICET [Concomitant]
     Active Substance: ACETAMINOPHEN\BUTALBITAL\CAFFEINE
  10. HYOSCYAMINE. [Concomitant]
     Active Substance: HYOSCYAMINE
  11. ZOFRAN [Concomitant]
     Active Substance: ONDANSETRON HYDROCHLORIDE
  12. NAPROXEN. [Concomitant]
     Active Substance: NAPROXEN

REACTIONS (7)
  - Headache [Unknown]
  - Pre-existing condition improved [Unknown]
  - Head discomfort [Unknown]
  - Dizziness [Unknown]
  - Nausea [Unknown]
  - Therapeutic response unexpected [Unknown]
  - Vomiting [Unknown]

NARRATIVE: CASE EVENT DATE: 2016
